FAERS Safety Report 16672620 (Version 1)
Quarter: 2019Q3

REPORT INFORMATION
  Report Type: Spontaneous
  Country: ES (occurrence: ES)
  Receive Date: 20190806
  Receipt Date: 20190806
  Transmission Date: 20191004
  Serious: Yes (Death, Other)
  Sender: FDA-Public Use
  Company Number: ES-AMGEN-ESPSP2019123104

PATIENT
  Age: 34 Month
  Sex: Female

DRUGS (3)
  1. GANCICLOVIR. [Concomitant]
     Active Substance: GANCICLOVIR
     Indication: CYTOMEGALOVIRUS CHORIORETINITIS
     Dosage: 11 MILLIGRAM/KILOGRAM, QD
     Route: 042
     Dates: start: 1995
  2. FILGRASTIM [Suspect]
     Active Substance: FILGRASTIM
     Indication: NEUTROPENIA
     Dosage: UNK
     Route: 065
     Dates: start: 199502
  3. GANCICLOVIR. [Concomitant]
     Active Substance: GANCICLOVIR
     Indication: NECROTISING RETINITIS

REACTIONS (5)
  - Acute respiratory distress syndrome [Unknown]
  - Respiratory failure [Fatal]
  - Necrotising retinitis [Recovered/Resolved]
  - Off label use [Unknown]
  - Cytomegalovirus chorioretinitis [Recovered/Resolved]

NARRATIVE: CASE EVENT DATE: 1995
